FAERS Safety Report 7709708-3 (Version None)
Quarter: 2011Q3

REPORT INFORMATION
  Report Type: 
  Country: None (occurrence: None)
  Receive Date: 20110825
  Receipt Date: 20110818
  Transmission Date: 20111222
  Serious: Yes (Death)
  Sender: FDA-Public Use
  Company Number: JP-GLAXOSMITHKLINE-B0739133A

PATIENT
  Sex: Male

DRUGS (7)
  1. ARIXTRA [Suspect]
     Indication: DEEP VEIN THROMBOSIS
     Dosage: 7.5MG PER DAY
     Route: 058
     Dates: start: 20110714, end: 20110716
  2. ALLOPURINOL [Concomitant]
     Dosage: 100MG PER DAY
     Route: 048
     Dates: start: 20100701, end: 20110716
  3. WARFARIN SODIUM [Concomitant]
     Dosage: 5MG PER DAY
     Route: 048
     Dates: start: 20100701, end: 20110716
  4. TENORMIN [Concomitant]
     Dosage: 5MG PER DAY
     Route: 048
     Dates: start: 20100701, end: 20110716
  5. LANSOPRAZOLE [Concomitant]
     Dosage: 15MG PER DAY
     Route: 048
     Dates: start: 20100701, end: 20110716
  6. DIOVAN [Concomitant]
     Dosage: 80MG PER DAY
     Route: 048
     Dates: start: 20100701, end: 20110716
  7. CALBLOCK [Concomitant]
     Dosage: 16MG PER DAY
     Route: 048
     Dates: start: 20100701, end: 20110716

REACTIONS (3)
  - CARDIO-RESPIRATORY ARREST [None]
  - SUDDEN DEATH [None]
  - JOINT STIFFNESS [None]
